FAERS Safety Report 8871975 (Version 1)
Quarter: 2012Q4

REPORT INFORMATION
  Report Type: 
  Country: KR (occurrence: KR)
  Receive Date: 20121029
  Receipt Date: 20121029
  Transmission Date: 20130627
  Serious: Yes (Hospitalization)
  Sender: FDA-Public Use
  Company Number: KR-009507513-1210KOR010965

PATIENT
  Sex: Female

DRUGS (1)
  1. MERCILON [Suspect]
     Indication: CONTRACEPTION
     Dosage: UNK
     Route: 048
     Dates: start: 201207

REACTIONS (3)
  - Appendicitis [Recovered/Resolved]
  - Appendicectomy [Recovered/Resolved]
  - Menstruation irregular [Not Recovered/Not Resolved]
